FAERS Safety Report 7024569-6 (Version None)
Quarter: 2010Q4

REPORT INFORMATION
  Report Type: 
  Country: None (occurrence: None)
  Receive Date: 20101001
  Receipt Date: 20100908
  Transmission Date: 20110411
  Serious: Yes (Other)
  Sender: FDA-Public Use
  Company Number: US-BAYER-201022800NA

PATIENT
  Age: 22 Year
  Sex: Female
  Weight: 79 kg

DRUGS (2)
  1. YASMIN [Suspect]
     Indication: CONTRACEPTION
     Route: 048
     Dates: start: 20040101, end: 20050101
  2. ADVIL LIQUI-GELS [Concomitant]
     Indication: HEADACHE

REACTIONS (4)
  - ABDOMINAL PAIN UPPER [None]
  - CHOLELITHIASIS [None]
  - PANCREATITIS [None]
  - VOMITING [None]
